FAERS Safety Report 24943673 (Version 1)
Quarter: 2025Q1

REPORT INFORMATION
  Report Type: Report from Study
  Country: IL (occurrence: IL)
  Receive Date: 20250207
  Receipt Date: 20250207
  Transmission Date: 20250408
  Serious: Yes (Hospitalization)
  Sender: TAKEDA
  Company Number: IL-SHIRE-IL202022590

PATIENT
  Age: 7 Year
  Sex: Male
  Weight: 29 kg

DRUGS (8)
  1. IDURSULFASE [Suspect]
     Active Substance: IDURSULFASE
     Indication: Mucopolysaccharidosis II
     Dosage: 14 MILLIGRAM, 1/WEEK
     Dates: start: 20180515
  2. IDURSULFASE [Suspect]
     Active Substance: IDURSULFASE
     Dosage: 2.6 DOSAGE FORM, QD
     Dates: start: 20180521
  3. IDURSULFASE [Suspect]
     Active Substance: IDURSULFASE
     Dosage: 14 MILLIGRAM, 1/WEEK
  4. IDURSULFASE [Suspect]
     Active Substance: IDURSULFASE
     Dosage: 3.5 DOSAGE FORM, 1/WEEK
  5. IDURSULFASE [Suspect]
     Active Substance: IDURSULFASE
     Dosage: 3 DOSAGE FORM, 1/WEEK
  6. IDURSULFASE [Suspect]
     Active Substance: IDURSULFASE
     Dosage: 18 MILLIGRAM, 1/WEEK
  7. IDURSULFASE [Suspect]
     Active Substance: IDURSULFASE
     Dosage: 21 MILLIGRAM, 1/WEEK
  8. IDURSULFASE [Suspect]
     Active Substance: IDURSULFASE
     Dosage: UNK UNK, 1/WEEK

REACTIONS (7)
  - Knee deformity [Unknown]
  - COVID-19 [Recovered/Resolved]
  - Weight increased [Unknown]
  - Rhinorrhoea [Unknown]
  - Pyrexia [Unknown]
  - Cough [Unknown]
  - Rash pruritic [Recovered/Resolved]

NARRATIVE: CASE EVENT DATE: 20200720
